FAERS Safety Report 15191411 (Version 1)
Quarter: 2018Q3

REPORT INFORMATION
  Report Type: Report from Study
  Country: US (occurrence: US)
  Receive Date: 20180724
  Receipt Date: 20180724
  Transmission Date: 20181010
  Serious: No
  Sender: FDA-Public Use
  Company Number: US-AMGEN-USASL2018026819

PATIENT
  Age: 76 Year
  Sex: Male

DRUGS (1)
  1. KYPROLIS [Suspect]
     Active Substance: CARFILZOMIB
     Indication: PLASMA CELL MYELOMA
     Dosage: UNK, TWICE A WEEK FOR 3 WEEKS THEN OFF 1 WEEK
     Route: 042

REACTIONS (6)
  - Insomnia [Unknown]
  - Blood pressure increased [Unknown]
  - Chills [Unknown]
  - Nausea [Unknown]
  - Blood glucose increased [Unknown]
  - Fatigue [Unknown]
